FAERS Safety Report 4351272-3 (Version None)
Quarter: 2004Q2

REPORT INFORMATION
  Report Type: 
  Country: None (occurrence: None)
  Receive Date: 20040428
  Receipt Date: 20040420
  Transmission Date: 20050107
  Serious: Yes (Death, Other)
  Sender: FDA-Public Use
  Company Number: USA-2004-0014648

PATIENT
  Sex: Male

DRUGS (3)
  1. OXYCONTIN [Suspect]
     Dosage: 80 MG
  2. COCAINE (COCAINE) [Suspect]
  3. XANAX [Suspect]

REACTIONS (3)
  - DRUG ABUSER [None]
  - DRUG SCREEN POSITIVE [None]
  - SELF-MEDICATION [None]
